FAERS Safety Report 24975693 (Version 1)
Quarter: 2025Q1

REPORT INFORMATION
  Report Type: Spontaneous
  Country: US (occurrence: US)
  Receive Date: 20250217
  Receipt Date: 20250217
  Transmission Date: 20250409
  Serious: Yes (Other)
  Sender: AMGEN
  Company Number: US-AMGEN-USASP2025030832

PATIENT
  Age: 66 Year
  Sex: Female

DRUGS (14)
  1. OTEZLA [Suspect]
     Active Substance: APREMILAST
     Indication: Psoriatic arthropathy
     Dosage: 30 MILLIGRAM, BID
     Route: 048
     Dates: start: 20230224
  2. LISINOPRIL [Concomitant]
     Active Substance: LISINOPRIL
  3. MIDODRINE [Concomitant]
     Active Substance: MIDODRINE
  4. EXCEDRIN MIGRAINE [Concomitant]
     Active Substance: ACETAMINOPHEN\ASPIRIN\CAFFEINE
  5. EZETIMIBE [Concomitant]
     Active Substance: EZETIMIBE
  6. PAROXETINE [Concomitant]
     Active Substance: PAROXETINE
  7. CLOPIDOGREL [Concomitant]
     Active Substance: CLOPIDOGREL BISULFATE
  8. OMEPRAZOLE [Concomitant]
     Active Substance: OMEPRAZOLE
  9. POTASSIUM CHLORIDE [Concomitant]
     Active Substance: POTASSIUM CHLORIDE
  10. ATORVASTATIN [Concomitant]
     Active Substance: ATORVASTATIN
  11. HUMALOG [Concomitant]
     Active Substance: INSULIN LISPRO
  12. NITROGLYCERIN [Concomitant]
     Active Substance: NITROGLYCERIN
  13. METOPROLOL [Concomitant]
     Active Substance: METOPROLOL
  14. BUPROPION [Concomitant]
     Active Substance: BUPROPION

REACTIONS (2)
  - Psoriatic arthropathy [Unknown]
  - Back pain [Unknown]
